FAERS Safety Report 7161689-X (Version None)
Quarter: 2010Q4

REPORT INFORMATION
  Report Type: 
  Country: None (occurrence: None)
  Receive Date: 20101201
  Receipt Date: 20101116
  Transmission Date: 20110411
  Serious: No
  Sender: FDA-Public Use
  Company Number: PHHY2010MX78042

PATIENT
  Age: 35 Year
  Sex: Female

DRUGS (1)
  1. SIRDALUD (TIZANIDINE HYDROCHLORIDE) CAPSULE, 2 MG (LOT #N0079) [Suspect]
     Indication: GASTROENTERITIS
     Dosage: 2 MG, DAILY BY MOUTH ORAL
     Route: 048
     Dates: start: 20101030, end: 20101030

REACTIONS (1)
  - LARYNGOSPASM [None]
